FAERS Safety Report 7978133-2 (Version None)
Quarter: 2011Q4

REPORT INFORMATION
  Report Type: 
  Country: None (occurrence: None)
  Receive Date: 20111206
  Receipt Date: 20111125
  Transmission Date: 20120403
  Serious: Yes (Other)
  Sender: FDA-Public Use
  Company Number: 2011SP056003

PATIENT
  Age: 58 Year
  Sex: Male

DRUGS (4)
  1. LITHIUM CARBONATE [Concomitant]
  2. SYCREST (ASENAPINE /05706901/) [Suspect]
     Indication: BIPOLAR I DISORDER
     Dosage: 5 MG;BID;OTHER, 10 MG;BID;OTHER
     Route: 050
     Dates: start: 20111114, end: 20111117
  3. SYCREST (ASENAPINE /05706901/) [Suspect]
     Indication: BIPOLAR I DISORDER
     Dosage: 5 MG;BID;OTHER, 10 MG;BID;OTHER
     Route: 050
     Dates: start: 20111109, end: 20111113
  4. BENZODIAZEPINES [Concomitant]

REACTIONS (9)
  - SALIVARY HYPERSECRETION [None]
  - DYSTONIA [None]
  - MUSCULOSKELETAL STIFFNESS [None]
  - HYPOTENSION [None]
  - VIRAL INFECTION [None]
  - PYREXIA [None]
  - DYSPHAGIA [None]
  - DYSARTHRIA [None]
  - AKATHISIA [None]
